FAERS Safety Report 19579755 (Version 1)
Quarter: 2021Q3

REPORT INFORMATION
  Report Type: Report from Study
  Country: US (occurrence: US)
  Receive Date: 20210720
  Receipt Date: 20210720
  Transmission Date: 20211014
  Serious: No
  Sender: FDA-Public Use
  Company Number: NVSC2021US163287

PATIENT
  Sex: Female

DRUGS (1)
  1. XIIDRA [Suspect]
     Active Substance: LIFITEGRAST
     Indication: DRY EYE
     Dosage: 1 DRP (GTT), BID
     Route: 047
     Dates: start: 20210619

REACTIONS (2)
  - Dysgeusia [Not Recovered/Not Resolved]
  - Sinusitis [Not Recovered/Not Resolved]
